FAERS Safety Report 25366859 (Version 5)
Quarter: 2025Q3

REPORT INFORMATION
  Report Type: Spontaneous
  Country: EU (occurrence: EU)
  Receive Date: 20250528
  Receipt Date: 20250829
  Transmission Date: 20251021
  Serious: Yes (Death, Hospitalization, Other)
  Sender: AUROBINDO
  Company Number: EU-ABBVIE-6274544

PATIENT
  Age: 65 Year
  Sex: Male

DRUGS (10)
  1. AZACITIDINE [Suspect]
     Active Substance: AZACITIDINE
     Indication: Acute myeloid leukaemia
     Route: 065
  2. CLINDAMYCIN [Suspect]
     Active Substance: CLINDAMYCIN
     Indication: Streptococcal infection
     Route: 065
  3. VENETOCLAX [Suspect]
     Active Substance: VENETOCLAX
     Indication: Acute myeloid leukaemia
     Route: 048
  4. PIPERACILLIN SODIUM\TAZOBACTAM SODIUM [Concomitant]
     Active Substance: PIPERACILLIN SODIUM\TAZOBACTAM SODIUM
     Indication: Skin infection
     Route: 065
  5. AMIKACIN [Concomitant]
     Active Substance: AMIKACIN
     Indication: Skin infection
     Route: 065
  6. PENICILLIN [Concomitant]
     Active Substance: PENICILLIN
     Indication: Streptococcal infection
     Route: 065
  7. RIFAMPIN [Concomitant]
     Active Substance: RIFAMPIN
     Indication: Disseminated tuberculosis
     Route: 065
  8. PYRAZINAMIDE [Concomitant]
     Active Substance: PYRAZINAMIDE
     Indication: Disseminated tuberculosis
     Route: 065
  9. ISONIAZID [Concomitant]
     Active Substance: ISONIAZID
     Indication: Disseminated tuberculosis
     Route: 065
  10. ETHAMBUTOL [Concomitant]
     Active Substance: ETHAMBUTOL HYDROCHLORIDE
     Indication: Disseminated tuberculosis
     Route: 065

REACTIONS (4)
  - Disseminated tuberculosis [Fatal]
  - Urticaria [Fatal]
  - Drug ineffective [Fatal]
  - Tuberculosis [Unknown]
